FAERS Safety Report 18318942 (Version 4)
Quarter: 2020Q4

REPORT INFORMATION
  Report Type: Report from Study
  Country: FR (occurrence: FR)
  Receive Date: 20200928
  Receipt Date: 20201112
  Transmission Date: 20210113
  Serious: Yes (Other)
  Sender: FDA-Public Use
  Company Number: FR-BIOVITRUM-2020FR5095

PATIENT
  Age: 56 Year
  Sex: Male
  Weight: 132 kg

DRUGS (8)
  1. KINERET [Suspect]
     Active Substance: ANAKINRA
     Indication: COVID-19
     Route: 041
     Dates: start: 20200910
  2. LOVENOX [Concomitant]
     Active Substance: ENOXAPARIN SODIUM
     Dosage: 6000UI
     Dates: start: 20200905
  3. SERETIDE [Concomitant]
     Active Substance: FLUTICASONE PROPIONATE\SALMETEROL XINAFOATE
  4. ENALAPRIL [Concomitant]
     Active Substance: ENALAPRIL
     Dates: start: 20200904
  5. LERCAPRESS [Concomitant]
  6. LASILIX [Concomitant]
     Active Substance: FUROSEMIDE
  7. SPIRIVA [Concomitant]
     Active Substance: TIOTROPIUM BROMIDE MONOHYDRATE
  8. PIPERACILLIN AND TAZOBACTAM [Concomitant]
     Active Substance: PIPERACILLIN SODIUM\TAZOBACTAM SODIUM
     Dates: start: 20200908

REACTIONS (1)
  - Hepatocellular injury [Recovered/Resolved]

NARRATIVE: CASE EVENT DATE: 20200913
